FAERS Safety Report 4457998-5 (Version None)
Quarter: 2004Q3

REPORT INFORMATION
  Report Type: 
  Country: None (occurrence: None)
  Receive Date: 20040917
  Receipt Date: 20040422
  Transmission Date: 20050211
  Serious: Yes (Other)
  Sender: FDA-Public Use
  Company Number: US-JNJFOC-20040402497

PATIENT
  Age: 42 Year
  Sex: Female
  Weight: 60.3284 kg

DRUGS (3)
  1. TOPAMAX [Suspect]
     Indication: CONVULSION
     Dosage: ORAL
     Route: 048
  2. KEPPRA [Concomitant]
  3. LEXAPRO [Concomitant]

REACTIONS (7)
  - CONVULSION [None]
  - DEHYDRATION [None]
  - FOOT OPERATION [None]
  - FUNGAL INFECTION [None]
  - PERONEAL NERVE PALSY [None]
  - WEIGHT DECREASED [None]
  - WEIGHT INCREASED [None]
